FAERS Safety Report 18896195 (Version 3)
Quarter: 2021Q2

REPORT INFORMATION
  Report Type: Other
  Country: DE (occurrence: DE)
  Receive Date: 20210216
  Receipt Date: 20210530
  Transmission Date: 20210717
  Serious: Yes (Other)
  Sender: FDA-Public Use
  Company Number: DE-CELLTRION INC.-2021DE001496

PATIENT

DRUGS (7)
  1. RITUXIMAB (UNKNOWN) [Suspect]
     Active Substance: RITUXIMAB
     Indication: SECONDARY PROGRESSIVE MULTIPLE SCLEROSIS
     Dosage: PER BODYWEIGHT/ EVERY 14 DAYS
     Route: 042
     Dates: start: 20190429
  2. IBUPROFEN. [Concomitant]
     Active Substance: IBUPROFEN
     Dosage: AS REQUIRED
  3. ASPIRIN. [Concomitant]
     Active Substance: ASPIRIN
     Dosage: 100 MG
  4. RITUXIMAB (UNKNOWN) [Suspect]
     Active Substance: RITUXIMAB
     Dosage: UNK
     Route: 042
     Dates: start: 202006
  5. PREGABALIN. [Concomitant]
     Active Substance: PREGABALIN
  6. DEKRISTOL [Concomitant]
     Active Substance: CHOLECALCIFEROL
  7. PANTOPRAZOL [PANTOPRAZOLE] [Concomitant]
     Active Substance: PANTOPRAZOLE
     Dosage: UNK

REACTIONS (13)
  - Neuralgia [Not Recovered/Not Resolved]
  - Gait disturbance [Not Recovered/Not Resolved]
  - Conjunctivitis [Recovered/Resolved]
  - Fatigue [Recovered/Resolved]
  - Abdominal pain [Recovered/Resolved]
  - Off label use [Unknown]
  - Coronavirus infection [Recovered/Resolved]
  - Angina pectoris [Recovered/Resolved]
  - Vomiting [Recovered/Resolved]
  - Intentional product use issue [Unknown]
  - Gastrointestinal disorder [Recovered/Resolved]
  - Nasopharyngitis [Recovered/Resolved]
  - Nausea [Recovered/Resolved]

NARRATIVE: CASE EVENT DATE: 20190603
